FAERS Safety Report 8470393-7 (Version None)
Quarter: 2012Q2

REPORT INFORMATION
  Report Type: 
  Country: None (occurrence: None)
  Receive Date: 20120627
  Receipt Date: 20120619
  Transmission Date: 20120825
  Serious: Yes (Hospitalization)
  Sender: FDA-Public Use
  Company Number: US-BAYER-2012-011421

PATIENT
  Age: 20 Year
  Sex: Female
  Weight: 55.782 kg

DRUGS (6)
  1. MOTRIN [Concomitant]
     Indication: HEADACHE
     Route: 048
  2. ANALGESICS [Concomitant]
     Indication: HEADACHE
     Route: 048
  3. MARIJUANA [Concomitant]
     Dosage: UNK
     Dates: start: 20090420
  4. YAZ [Suspect]
     Indication: CONTRACEPTION
     Dosage: UNK
     Dates: start: 20071120, end: 20090502
  5. CEFTIN [Concomitant]
  6. ALBUTEROL [Concomitant]

REACTIONS (9)
  - PULMONARY INFARCTION [None]
  - PHYSICAL DISABILITY [None]
  - CHEST PAIN [None]
  - PULMONARY EMBOLISM [None]
  - EMOTIONAL DISTRESS [None]
  - ANXIETY [None]
  - COUGH [None]
  - INJURY [None]
  - GENERAL PHYSICAL HEALTH DETERIORATION [None]
